FAERS Safety Report 17841426 (Version 1)
Quarter: 2020Q2

REPORT INFORMATION
  Report Type: Spontaneous
  Country: US (occurrence: US)
  Receive Date: 20200529
  Receipt Date: 20200529
  Transmission Date: 20200714
  Serious: No
  Sender: FDA-Public Use
  Company Number: US-B.BRAUN MEDICAL INC.-2084322

PATIENT
  Age: 53 Year
  Sex: Female

DRUGS (2)
  1. SODIUM CHLORIDE INJECTION USP 0264-7800-09 [Suspect]
     Active Substance: SODIUM CHLORIDE
     Dates: start: 20200428, end: 20200428
  2. REMICADE [Concomitant]
     Active Substance: INFLIXIMAB

REACTIONS (3)
  - Pyrexia [None]
  - Tremor [None]
  - Dizziness [None]
